FAERS Safety Report 8487048-5 (Version None)
Quarter: 2012Q3

REPORT INFORMATION
  Report Type: 
  Country: None (occurrence: None)
  Receive Date: 20120704
  Receipt Date: 20120628
  Transmission Date: 20120928
  Serious: Yes (Hospitalization)
  Sender: FDA-Public Use
  Company Number: PHHY2012AU053659

PATIENT
  Sex: Female

DRUGS (2)
  1. GILENYA [Suspect]
     Indication: MULTIPLE SCLEROSIS
     Route: 048
     Dates: start: 20120621
  2. CIPROFLOXACIN HCL [Concomitant]
     Indication: GASTROENTERITIS AEROMONAS
     Dosage: UNK UKN, UNK
     Dates: start: 20120619

REACTIONS (6)
  - ELECTROCARDIOGRAM QT PROLONGED [None]
  - DIZZINESS [None]
  - ATRIOVENTRICULAR BLOCK FIRST DEGREE [None]
  - SINUS BRADYCARDIA [None]
  - ATRIOVENTRICULAR BLOCK SECOND DEGREE [None]
  - BLOOD PRESSURE DECREASED [None]
